FAERS Safety Report 23797390 (Version 3)
Quarter: 2024Q2

REPORT INFORMATION
  Report Type: Spontaneous
  Country: US (occurrence: US)
  Receive Date: 20240430
  Receipt Date: 20240613
  Transmission Date: 20240716
  Serious: No
  Sender: FDA-Public Use
  Company Number: US-SAGE-2024SAGE000055

PATIENT
  Age: 30 Year
  Sex: Female
  Weight: 124.63 kg

DRUGS (10)
  1. ZULRESSO [Suspect]
     Active Substance: BREXANOLONE
     Indication: Perinatal depression
     Dosage: UNK
     Route: 042
     Dates: start: 20240408, end: 20240408
  2. ZULRESSO [Suspect]
     Active Substance: BREXANOLONE
     Dosage: 60 MCG/KG/HR (DOSE AT THE TIME OF EVENT)
     Route: 042
     Dates: start: 20240408, end: 20240408
  3. ZULRESSO [Suspect]
     Active Substance: BREXANOLONE
     Dosage: 60 MCG/KG/HR
     Route: 042
     Dates: start: 20240408
  4. ZULRESSO [Suspect]
     Active Substance: BREXANOLONE
     Dosage: UNK
     Route: 042
     Dates: end: 20240410
  5. SYNTHROID [Concomitant]
     Active Substance: LEVOTHYROXINE SODIUM
     Indication: Product used for unknown indication
     Dosage: 150 UG, QD, LONGSTANDING MEDICATION
     Route: 065
     Dates: end: 20240408
  6. MOUNJARO [Concomitant]
     Active Substance: TIRZEPATIDE
     Indication: Product used for unknown indication
     Dosage: UNK
     Route: 058
  7. MOUNJARO [Concomitant]
     Active Substance: TIRZEPATIDE
     Dosage: 2.5 MG, QTUESDAYS
     Route: 058
     Dates: start: 20240402
  8. VILAZODONE [Concomitant]
     Active Substance: VILAZODONE
     Indication: Product used for unknown indication
     Dosage: 40 MG, QD, }1 YEAR DURATION
     Route: 065
     Dates: end: 20240407
  9. LAMOTRIGINE [Concomitant]
     Active Substance: LAMOTRIGINE
     Indication: Product used for unknown indication
     Dosage: 75 MG, QD
     Route: 065
     Dates: end: 20240407
  10. LEVOMEFOLIC ACID [Concomitant]
     Active Substance: LEVOMEFOLIC ACID
     Indication: Product used for unknown indication
     Dosage: 7.5 MG, QD, LONGSTANDING MEDICATION
     Route: 065
     Dates: end: 20240407

REACTIONS (3)
  - Headache [Recovered/Resolved]
  - Confusional state [Recovered/Resolved]
  - Sedation [Recovered/Resolved]

NARRATIVE: CASE EVENT DATE: 20240408
